FAERS Safety Report 7234086-6 (Version None)
Quarter: 2011Q1

REPORT INFORMATION
  Report Type: 
  Country: None (occurrence: None)
  Receive Date: 20110113
  Receipt Date: 20110113
  Transmission Date: 20110831
  Serious: Yes (Other)
  Sender: FDA-Public Use
  Company Number: None

PATIENT
  Age: 35 Year
  Sex: Male
  Weight: 108.8633 kg

DRUGS (1)
  1. OXYCONTIN [Suspect]
     Indication: PAIN
     Dosage: 80MG TID-QID PO
     Route: 048

REACTIONS (6)
  - ABDOMINAL PAIN UPPER [None]
  - ILL-DEFINED DISORDER [None]
  - HEADACHE [None]
  - DRUG EFFECT DECREASED [None]
  - NAUSEA [None]
  - PRODUCT SUBSTITUTION ISSUE [None]
